FAERS Safety Report 12850406 (Version 2)
Quarter: 2016Q4

REPORT INFORMATION
  Report Type: Spontaneous
  Country: RU (occurrence: RU)
  Receive Date: 20161014
  Receipt Date: 20161023
  Transmission Date: 20170207
  Serious: Yes (Other)
  Sender: FDA-Public Use
  Company Number: RU-ABBVIE-16P-251-1752635-00

PATIENT
  Age: 3 Year
  Sex: Female
  Weight: 17 kg

DRUGS (4)
  1. SEVOFRANE [Suspect]
     Active Substance: SEVOFLURANE
     Indication: GENERAL ANAESTHESIA
     Dosage: 8 VOL%
     Route: 055
     Dates: start: 20160927, end: 20160927
  2. SEVOFRANE [Suspect]
     Active Substance: SEVOFLURANE
     Dosage: 5-8 VOL%
     Route: 055
     Dates: start: 20160927, end: 20160927
  3. ANALGIN [Concomitant]
     Active Substance: METAMIZOLE SODIUM
     Indication: ANAESTHESIA
     Dosage: 0.3 ML
     Route: 042
     Dates: start: 20160927, end: 20160927
  4. SEVOFRANE [Suspect]
     Active Substance: SEVOFLURANE
     Indication: DENTAL CARE
     Dosage: 3.5 VOL%
     Route: 055
     Dates: start: 20160927, end: 20160927

REACTIONS (3)
  - Laryngospasm [Recovered/Resolved]
  - Endotracheal intubation complication [Recovered/Resolved]
  - Drug ineffective [Recovered/Resolved]

NARRATIVE: CASE EVENT DATE: 20160927
